FAERS Safety Report 4381467-4 (Version None)
Quarter: 2004Q2

REPORT INFORMATION
  Report Type: 
  Country: None (occurrence: None)
  Receive Date: 20040621
  Receipt Date: 20040615
  Transmission Date: 20050107
  Serious: Yes (Hospitalization, Disabling)
  Sender: FDA-Public Use
  Company Number: PT-BRISTOL-MYERS SQUIBB COMPANY-12615340

PATIENT
  Sex: Male

DRUGS (2)
  1. PRAVACHOL [Suspect]
     Route: 048
     Dates: start: 20031201
  2. AMIODARONE CHLORHYDRATE [Suspect]
     Route: 048
     Dates: start: 20031201

REACTIONS (2)
  - AMYOTROPHIC LATERAL SCLEROSIS [None]
  - MYALGIA [None]
